FAERS Safety Report 6251675-6 (Version None)
Quarter: 2009Q2

REPORT INFORMATION
  Report Type: 
  Country: None (occurrence: None)
  Receive Date: 20090625
  Receipt Date: 20090625
  Transmission Date: 20091009
  Serious: No
  Sender: FDA-Public Use
  Company Number: None

PATIENT
  Age: 44 Year
  Sex: Female
  Weight: 55.3388 kg

DRUGS (2)
  1. LEXAPRO [Suspect]
     Indication: ANXIETY
     Dosage: 15MG 1X DAY PO
     Route: 048
     Dates: start: 20090324, end: 20090624
  2. LEXAPRO [Suspect]
     Indication: PANIC DISORDER
     Dosage: 15MG 1X DAY PO
     Route: 048
     Dates: start: 20090324, end: 20090624

REACTIONS (4)
  - ALOPECIA [None]
  - ANXIETY [None]
  - HAIR TEXTURE ABNORMAL [None]
  - PRODUCT LABEL ISSUE [None]
